FAERS Safety Report 23711887 (Version 1)
Quarter: 2024Q2

REPORT INFORMATION
  Report Type: Spontaneous
  Country: AU (occurrence: AU)
  Receive Date: 20240405
  Receipt Date: 20240405
  Transmission Date: 20240716
  Serious: Yes (Other)
  Sender: FDA-Public Use
  Company Number: AU-AUS-SPO/AUS/24/0005182

PATIENT
  Age: 79 Year
  Sex: Male

DRUGS (15)
  1. DASATINIB [Suspect]
     Active Substance: DASATINIB
     Indication: Product used for unknown indication
  2. IMATINIB [Suspect]
     Active Substance: IMATINIB
     Indication: Product used for unknown indication
  3. ISOSORBIDE MONONITRATE [Suspect]
     Active Substance: ISOSORBIDE MONONITRATE
  4. METOPROLOL [Suspect]
     Active Substance: METOPROLOL
  5. ATORVASTATIN [Suspect]
     Active Substance: ATORVASTATIN
  6. AMLODIPINE [Suspect]
     Active Substance: AMLODIPINE BESYLATE
  7. LEUPROLIDE ACETATE [Suspect]
     Active Substance: ISOPROPYL ALCOHOL\LEUPROLIDE ACETATE
  8. NILOTINIB [Suspect]
     Active Substance: NILOTINIB
  9. PANTOPRAZOLE SODIUM [Suspect]
     Active Substance: PANTOPRAZOLE SODIUM
  10. PERINDOPRIL [Suspect]
     Active Substance: PERINDOPRIL
  11. RAMIPRIL [Suspect]
     Active Substance: RAMIPRIL
  12. ASPIRIN [Concomitant]
     Active Substance: ASPIRIN
  13. CALCIUM [Concomitant]
     Active Substance: CALCIUM
  14. FUROSEMIDE [Concomitant]
     Active Substance: FUROSEMIDE
  15. GEMFIBROZIL [Concomitant]
     Active Substance: GEMFIBROZIL

REACTIONS (8)
  - Cytomegalovirus colitis [Unknown]
  - Myeloid leukaemia [Unknown]
  - Rectal haemorrhage [Unknown]
  - Renal failure [Unknown]
  - Pleural effusion [Unknown]
  - Leukocytosis [Unknown]
  - Fatigue [Unknown]
  - Urinary tract infection [Unknown]
